FAERS Safety Report 17096651 (Version 1)
Quarter: 2019Q4

REPORT INFORMATION
  Report Type: Spontaneous
  Country: CA (occurrence: CA)
  Receive Date: 20191202
  Receipt Date: 20191202
  Transmission Date: 20200122
  Serious: Yes (Death)
  Sender: FDA-Public Use
  Company Number: CA-ABBVIE-19K-028-3176374-00

PATIENT
  Age: 56 Year
  Sex: Male

DRUGS (1)
  1. VENETOCLAX. [Suspect]
     Active Substance: VENETOCLAX
     Indication: CHRONIC LYMPHOCYTIC LEUKAEMIA
     Route: 048
     Dates: start: 201812

REACTIONS (7)
  - Death [Fatal]
  - Weight decreased [Unknown]
  - Hypophosphataemia [Unknown]
  - Anaemia [Unknown]
  - Bone pain [Unknown]
  - Chronic obstructive pulmonary disease [Unknown]
  - Lymphadenopathy [Unknown]
